FAERS Safety Report 4619960-9 (Version None)
Quarter: 2005Q1

REPORT INFORMATION
  Report Type: 
  Country: None (occurrence: None)
  Receive Date: 20050328
  Receipt Date: 20040105
  Transmission Date: 20050727
  Serious: Yes (Hospitalization, Other)
  Sender: FDA-Public Use
  Company Number: AU-ABBOTT-04P-008-0246233-00

PATIENT
  Sex: Female
  Weight: 55 kg

DRUGS (4)
  1. HUMIRA [Suspect]
     Indication: CROHN'S DISEASE
     Route: 058
     Dates: start: 20031218, end: 20031218
  2. ISONIAZID [Concomitant]
     Indication: TUBERCULOSIS PROPHYLAXIS
     Dates: start: 20031209
  3. PYRIDOXINE HCL [Concomitant]
     Indication: TUBERCULOSIS PROPHYLAXIS
     Dates: start: 20031209
  4. MAXALON [Concomitant]
     Indication: NAUSEA
     Dates: start: 20031212

REACTIONS (2)
  - DEHYDRATION [None]
  - SERUM SICKNESS [None]
